FAERS Safety Report 6067581-6 (Version None)
Quarter: 2009Q1

REPORT INFORMATION
  Report Type: 
  Country: None (occurrence: None)
  Receive Date: 20090205
  Receipt Date: 20090128
  Transmission Date: 20090719
  Serious: Yes (Disabling)
  Sender: FDA-Public Use
  Company Number: US-BAXTER-2009BH001617

PATIENT
  Sex: Female

DRUGS (1)
  1. HEPARIN [Suspect]
     Indication: DRUG USE FOR UNKNOWN INDICATION
     Route: 065
     Dates: start: 20080412

REACTIONS (1)
  - MULTI-ORGAN FAILURE [None]
